FAERS Safety Report 9832548 (Version 1)
Quarter: 2014Q1

REPORT INFORMATION
  Report Type: Spontaneous
  Country: GB (occurrence: GB)
  Receive Date: 20140121
  Receipt Date: 20140121
  Transmission Date: 20141002
  Serious: Yes (Other)
  Sender: FDA-Public Use
  Company Number: GB-ELI_LILLY_AND_COMPANY-GB201401006128

PATIENT
  Age: 80 Year
  Sex: Female

DRUGS (1)
  1. HUMALOG 25% LISPRO, 75% NPL [Suspect]
     Indication: PRODUCT USED FOR UNKNOWN INDICATION
     Dosage: 14 U, UNKNOWN
     Route: 065

REACTIONS (2)
  - Diabetes mellitus inadequate control [Unknown]
  - Incorrect dose administered [Unknown]
